FAERS Safety Report 9283587 (Version 1)
Quarter: 2013Q2

REPORT INFORMATION
  Report Type: Spontaneous
  Country: US (occurrence: US)
  Receive Date: 20130510
  Receipt Date: 20130510
  Transmission Date: 20140414
  Serious: Yes (Other)
  Sender: FDA-Public Use
  Company Number: US-ASTRAZENECA-2013SE31219

PATIENT
  Age: 63 Year
  Sex: Female
  Weight: 49.9 kg

DRUGS (9)
  1. NEXIUM [Suspect]
     Indication: IRRITABLE BOWEL SYNDROME
     Route: 048
     Dates: start: 2000
  2. NEXIUM [Suspect]
     Indication: GASTROOESOPHAGEAL REFLUX DISEASE
     Route: 048
     Dates: start: 2000
  3. NEXIUM [Suspect]
     Indication: IRRITABLE BOWEL SYNDROME
     Route: 048
  4. NEXIUM [Suspect]
     Indication: GASTROOESOPHAGEAL REFLUX DISEASE
     Route: 048
  5. PRILOSEC OTC [Suspect]
     Route: 048
  6. SYNTHROID [Concomitant]
     Dates: start: 1990
  7. LOSAARTAN [Concomitant]
  8. ATENOLOL [Concomitant]
  9. RAMIPIL [Concomitant]

REACTIONS (7)
  - Breast cancer female [Unknown]
  - Staphylococcal infection [Unknown]
  - Peroneal nerve palsy [Unknown]
  - Gastrooesophageal reflux disease [Unknown]
  - Feeling abnormal [Unknown]
  - Therapy change [Unknown]
  - Intentional drug misuse [Unknown]
